FAERS Safety Report 22370507 (Version 1)
Quarter: 2023Q2

REPORT INFORMATION
  Report Type: Spontaneous
  Country: AU (occurrence: AU)
  Receive Date: 20230526
  Receipt Date: 20230526
  Transmission Date: 20230722
  Serious: Yes (Other)
  Sender: FDA-Public Use
  Company Number: AU-BEH-2023159190

PATIENT
  Age: 55 Year
  Sex: Male

DRUGS (1)
  1. HUMAN IMMUNOGLOBULIN G [Suspect]
     Active Substance: HUMAN IMMUNOGLOBULIN G
     Indication: Plasma cell myeloma
     Dosage: 40 GRAM
     Route: 065
     Dates: start: 20230518

REACTIONS (4)
  - Respiratory distress [Unknown]
  - Chest pain [Unknown]
  - Tachycardia [Unknown]
  - Chills [Unknown]

NARRATIVE: CASE EVENT DATE: 20230518
